FAERS Safety Report 10846576 (Version 2)
Quarter: 2015Q2

REPORT INFORMATION
  Report Type: Spontaneous
  Country: SI (occurrence: SI)
  Receive Date: 20150220
  Receipt Date: 20150410
  Transmission Date: 20150821
  Serious: Yes (Life-Threatening)
  Sender: FDA-Public Use
  Company Number: SI-BAYER-2015-023698

PATIENT
  Age: 13 Year
  Sex: Female

DRUGS (2)
  1. ULTRAVIST [Suspect]
     Active Substance: IOPROMIDE
     Indication: SCAN BRAIN
     Dosage: 60 ML, ONCE, FLOW 1.5 ML/S
     Route: 042
     Dates: start: 20150123, end: 20150123
  2. ULTRAVIST [Suspect]
     Active Substance: IOPROMIDE
     Indication: SCAN BRAIN
     Dosage: 60 ML, ONCE, FLOW 1.5 ML/S
     Route: 042
     Dates: start: 20150123, end: 20150123

REACTIONS (1)
  - Vomiting [Unknown]

NARRATIVE: CASE EVENT DATE: 20150123
